FAERS Safety Report 18989230 (Version 4)
Quarter: 2025Q2

REPORT INFORMATION
  Report Type: Spontaneous
  Country: IT (occurrence: IT)
  Receive Date: 20210310
  Receipt Date: 20250626
  Transmission Date: 20250717
  Serious: Yes (Death, Hospitalization, Other)
  Sender: AUROBINDO
  Company Number: IT-MLMSERVICE-20210225-2742354-1

PATIENT
  Age: 52 Year
  Sex: Male

DRUGS (10)
  1. MEROPENEM [Suspect]
     Active Substance: MEROPENEM
     Indication: Antibiotic therapy
     Dosage: 1 GRAM, 3 TIMES A DAY (LONG-TERM)
     Route: 065
  2. VORICONAZOLE [Suspect]
     Active Substance: VORICONAZOLE
     Indication: Geotrichum infection
     Dosage: 4 MILLIGRAM/KILOGRAM, TWO TIMES A DAY
     Route: 065
  3. VORICONAZOLE [Suspect]
     Active Substance: VORICONAZOLE
     Dosage: 6 MILLIGRAM/KILOGRAM, TWO TIMES A DAY
     Route: 065
  4. AMPHOTERICIN B [Suspect]
     Active Substance: AMPHOTERICIN B
     Indication: Geotrichum infection
     Dosage: 5 MILLIGRAM/KILOGRAM, ONCE A DAY
     Route: 065
  5. CEFTAZIDIME [Suspect]
     Active Substance: CEFTAZIDIME
     Indication: Prophylaxis
     Route: 065
     Dates: start: 2017
  6. TIGECYCLINE [Suspect]
     Active Substance: TIGECYCLINE
     Indication: Prophylaxis
     Route: 065
     Dates: start: 2017
  7. VANCOMYCIN [Suspect]
     Active Substance: VANCOMYCIN
     Indication: Antibiotic therapy
     Dosage: 500 MILLIGRAM, FOUR TIMES/DAY (LONG-TERM)
     Route: 065
  8. ANIDULAFUNGIN [Concomitant]
     Active Substance: ANIDULAFUNGIN
     Indication: Prophylaxis
     Route: 065
     Dates: start: 2017
  9. BASILIXIMAB [Concomitant]
     Active Substance: BASILIXIMAB
     Indication: Immunosuppressant drug therapy
     Route: 065
     Dates: start: 2017, end: 2017
  10. TACROLIMUS [Concomitant]
     Active Substance: TACROLIMUS
     Indication: Immunosuppressant drug therapy
     Route: 048
     Dates: start: 2017

REACTIONS (5)
  - Multiple organ dysfunction syndrome [Fatal]
  - Geotrichum infection [Recovering/Resolving]
  - Fungal infection [Recovering/Resolving]
  - Renal impairment [Unknown]
  - Drug interaction [Unknown]

NARRATIVE: CASE EVENT DATE: 20170101
